FAERS Safety Report 7922376-0 (Version None)
Quarter: 2011Q4

REPORT INFORMATION
  Report Type: 
  Country: None (occurrence: None)
  Receive Date: 20111117
  Receipt Date: 20110119
  Transmission Date: 20120403
  Serious: No
  Sender: FDA-Public Use
  Company Number: US-AMGEN-USASP2011003624

PATIENT
  Age: 57 Year
  Sex: Female

DRUGS (4)
  1. ENBREL [Suspect]
     Indication: PSORIASIS
     Dosage: UNK
  2. METFORMIN HCL [Concomitant]
  3. HUMIRA [Suspect]
     Dosage: 40 MG, 2 TIMES/WK
     Route: 058
     Dates: start: 20070101
  4. VICTOZA [Concomitant]

REACTIONS (8)
  - WEIGHT INCREASED [None]
  - GLUCOSE TOLERANCE IMPAIRED [None]
  - PSORIASIS [None]
  - NAUSEA [None]
  - BLOOD GLUCOSE ABNORMAL [None]
  - ASTHENIA [None]
  - HOT FLUSH [None]
  - TREMOR [None]
